FAERS Safety Report 19079864 (Version 4)
Quarter: 2021Q3

REPORT INFORMATION
  Report Type: Spontaneous
  Country: FR (occurrence: FR)
  Receive Date: 20210331
  Receipt Date: 20210706
  Transmission Date: 20211014
  Serious: Yes (Other)
  Sender: FDA-Public Use
  Company Number: FR-ORGANON-2002FRA006574

PATIENT
  Age: 28 Year
  Sex: Female

DRUGS (1)
  1. NEXPLANON [Suspect]
     Active Substance: ETONOGESTREL
     Dosage: 1 IMPLANT, IN LEFT ARM
     Dates: start: 201511

REACTIONS (18)
  - Complication associated with device [Recovered/Resolved]
  - Device placement issue [Not Recovered/Not Resolved]
  - Mental disorder [Unknown]
  - Implant site pain [Unknown]
  - Device issue [Not Recovered/Not Resolved]
  - Complication of device removal [Not Recovered/Not Resolved]
  - Infertility female [Unknown]
  - Weight increased [Unknown]
  - Drug intolerance [Unknown]
  - Incorrect product administration duration [Unknown]
  - Abortion spontaneous [Unknown]
  - Keloid scar [Unknown]
  - Pregnancy with implant contraceptive [Recovered/Resolved]
  - Anxiety [Unknown]
  - Complication of device removal [Not Recovered/Not Resolved]
  - Surgery [Unknown]
  - Unintended pregnancy [Recovered/Resolved]
  - Pain in extremity [Unknown]

NARRATIVE: CASE EVENT DATE: 201511
